FAERS Safety Report 17859833 (Version 17)
Quarter: 2024Q4

REPORT INFORMATION
  Report Type: Spontaneous
  Country: CA (occurrence: CA)
  Receive Date: 20200604
  Receipt Date: 20241111
  Transmission Date: 20250114
  Serious: Yes (Death)
  Sender: ROCHE
  Company Number: CA-ROCHE-2606396

PATIENT
  Age: 58 Year
  Sex: Female

DRUGS (24)
  1. ACTEMRA [Suspect]
     Active Substance: TOCILIZUMAB
     Indication: Rheumatoid arthritis
     Route: 058
  2. ACTEMRA [Suspect]
     Active Substance: TOCILIZUMAB
     Route: 058
  3. ACTEMRA [Suspect]
     Active Substance: TOCILIZUMAB
     Route: 058
  4. ACTEMRA [Suspect]
     Active Substance: TOCILIZUMAB
     Route: 058
  5. ACTEMRA [Suspect]
     Active Substance: TOCILIZUMAB
     Route: 058
  6. ACTEMRA [Suspect]
     Active Substance: TOCILIZUMAB
     Route: 058
  7. RITUXAN [Suspect]
     Active Substance: RITUXIMAB
     Indication: Rheumatoid arthritis
     Route: 041
  8. RITUXAN [Suspect]
     Active Substance: RITUXIMAB
     Route: 041
  9. RITUXAN [Suspect]
     Active Substance: RITUXIMAB
     Route: 041
  10. RITUXAN [Suspect]
     Active Substance: RITUXIMAB
     Route: 041
  11. RITUXAN [Suspect]
     Active Substance: RITUXIMAB
     Route: 041
  12. RITUXAN [Suspect]
     Active Substance: RITUXIMAB
     Route: 041
  13. RITUXAN [Suspect]
     Active Substance: RITUXIMAB
     Route: 041
  14. RITUXAN [Suspect]
     Active Substance: RITUXIMAB
     Route: 041
  15. RITUXAN [Suspect]
     Active Substance: RITUXIMAB
     Route: 041
  16. RITUXAN [Suspect]
     Active Substance: RITUXIMAB
     Route: 041
  17. RITUXAN [Suspect]
     Active Substance: RITUXIMAB
     Route: 042
  18. TOCILIZUMAB [Suspect]
     Active Substance: TOCILIZUMAB
     Indication: Rheumatoid arthritis
     Route: 058
  19. TOCILIZUMAB [Suspect]
     Active Substance: TOCILIZUMAB
     Route: 058
  20. TOCILIZUMAB [Suspect]
     Active Substance: TOCILIZUMAB
     Indication: Rheumatoid arthritis
     Route: 065
  21. TOCILIZUMAB [Suspect]
     Active Substance: TOCILIZUMAB
     Indication: Product used for unknown indication
  22. ACTEMRA [Suspect]
     Active Substance: TOCILIZUMAB
     Indication: Rheumatoid arthritis
     Route: 065
  23. ACTEMRA [Suspect]
     Active Substance: TOCILIZUMAB
     Indication: Product used for unknown indication
  24. RITUXIMAB [Suspect]
     Active Substance: RITUXIMAB
     Indication: Rheumatoid arthritis
     Route: 042

REACTIONS (39)
  - Asthma [Fatal]
  - Back pain [Fatal]
  - Bursitis [Fatal]
  - Coeliac disease [Fatal]
  - Constipation [Fatal]
  - Drug hypersensitivity [Fatal]
  - Erythema [Fatal]
  - Fatigue [Fatal]
  - Fluid retention [Fatal]
  - Food allergy [Fatal]
  - Headache [Fatal]
  - Hepatic enzyme increased [Fatal]
  - Hyperhidrosis [Fatal]
  - Hypersensitivity [Fatal]
  - Immunodeficiency [Fatal]
  - Off label use [Fatal]
  - Pain [Fatal]
  - Rash erythematous [Fatal]
  - Rheumatoid arthritis [Fatal]
  - Temperature regulation disorder [Fatal]
  - Upper respiratory tract infection [Fatal]
  - Drug ineffective [Fatal]
  - Drug intolerance [Fatal]
  - Infusion related reaction [Fatal]
  - Joint swelling [Fatal]
  - Psoriasis [Fatal]
  - Pyrexia [Fatal]
  - Rash [Fatal]
  - Thrombocytopenia [Fatal]
  - Treatment failure [Fatal]
  - Contraindicated product administered [Fatal]
  - Hypertension [Fatal]
  - Overdose [Fatal]
  - Product use issue [Fatal]
  - Prescribed overdose [Fatal]
  - Intentional product misuse [Fatal]
  - Maternal exposure during pregnancy [Fatal]
  - Decreased immune responsiveness [Fatal]
  - Infection [Fatal]
